FAERS Safety Report 7994276-1 (Version None)
Quarter: 2011Q4

REPORT INFORMATION
  Report Type: 
  Country: None (occurrence: None)
  Receive Date: 20111220
  Receipt Date: 20111212
  Transmission Date: 20120403
  Serious: Yes (Hospitalization, Other)
  Sender: FDA-Public Use
  Company Number: FR-JNJFOC-20111205794

PATIENT
  Age: 69 Year
  Sex: Male
  Weight: 76 kg

DRUGS (3)
  1. XARELTO [Suspect]
     Indication: HIP ARTHROPLASTY
     Route: 065
     Dates: start: 20110121, end: 20110101
  2. VENOFER [Concomitant]
     Dates: start: 20110121
  3. KETOPROFEN [Concomitant]
     Dates: start: 20110121, end: 20110130

REACTIONS (2)
  - FALL [None]
  - DEVICE DISLOCATION [None]
